FAERS Safety Report 6744554-9 (Version None)
Quarter: 2010Q2

REPORT INFORMATION
  Report Type: 
  Country: None (occurrence: None)
  Receive Date: 20100527
  Receipt Date: 20100517
  Transmission Date: 20101027
  Serious: Yes (Hospitalization)
  Sender: FDA-Public Use
  Company Number: PHHY2010US31918

PATIENT
  Age: 70 Year
  Sex: Male

DRUGS (2)
  1. COMTAN [Suspect]
     Indication: PARKINSON'S DISEASE
     Dosage: 200 MG, UNK
     Route: 048
  2. TASMAR [Concomitant]
     Dosage: UNK, UNK

REACTIONS (1)
  - INCOHERENT [None]
